FAERS Safety Report 13678548 (Version 1)
Quarter: 2017Q2

REPORT INFORMATION
  Report Type: Spontaneous
  Country: PL (occurrence: PL)
  Receive Date: 20170622
  Receipt Date: 20170622
  Transmission Date: 20170830
  Serious: Yes (Hospitalization, Other)
  Sender: FDA-Public Use
  Company Number: PL-JNJFOC-20170619298

PATIENT
  Age: 35 Year
  Sex: Male
  Weight: 92 kg

DRUGS (2)
  1. MOVALIS [Concomitant]
     Active Substance: MELOXICAM
     Indication: ANKYLOSING SPONDYLITIS
     Route: 065
  2. SIMPONI [Suspect]
     Active Substance: GOLIMUMAB
     Indication: ANKYLOSING SPONDYLITIS
     Route: 058
     Dates: start: 20150330, end: 20151215

REACTIONS (4)
  - Pulmonary embolism [Recovered/Resolved]
  - Ventricular arrhythmia [Recovered/Resolved]
  - Deep vein thrombosis [Recovered/Resolved]
  - Injury [Unknown]

NARRATIVE: CASE EVENT DATE: 20160128
